FAERS Safety Report 4735557-4 (Version None)
Quarter: 2005Q3

REPORT INFORMATION
  Report Type: 
  Country: None (occurrence: None)
  Receive Date: 20050803
  Receipt Date: 20050719
  Transmission Date: 20060218
  Serious: Yes (Hospitalization, Disabling)
  Sender: FDA-Public Use
  Company Number: 002#4#2003-00463

PATIENT
  Age: 66 Year
  Sex: Female

DRUGS (4)
  1. CHLORPHENIRAMINE MALEATE AND PHENYLPROPANOLAMINE HCL [Suspect]
     Dosage: ORAL
     Route: 048
  2. BC-COLD-POWDER [Suspect]
     Dosage: ORAL
     Route: 048
  3. NITROGLYCERIN [Concomitant]
  4. ASPIRIN [Concomitant]

REACTIONS (4)
  - BLOOD PRESSURE INCREASED [None]
  - CEREBRAL ISCHAEMIA [None]
  - HAEMORRHAGIC STROKE [None]
  - HYPERCHOLESTEROLAEMIA [None]
